FAERS Safety Report 16085456 (Version 3)
Quarter: 2020Q2

REPORT INFORMATION
  Report Type: Spontaneous
  Country: US (occurrence: US)
  Receive Date: 20190318
  Receipt Date: 20200406
  Transmission Date: 20200713
  Serious: Yes (Hospitalization, Other)
  Sender: FDA-Public Use
  Company Number: US-NOVOPROD-651273

PATIENT
  Age: 67 Year
  Sex: Female
  Weight: 73.47 kg

DRUGS (1)
  1. TRESIBA [Suspect]
     Active Substance: INSULIN DEGLUDEC
     Indication: TYPE 2 DIABETES MELLITUS
     Dosage: 2U AND ADVISED INCREASE IF SUGARS DID NOT COME DOWN
     Route: 058

REACTIONS (5)
  - Ejection fraction decreased [Unknown]
  - Coronary artery disease [Unknown]
  - Urinary tract infection [Unknown]
  - Cardiac failure congestive [Not Recovered/Not Resolved]
  - Viral cardiomyopathy [Unknown]

NARRATIVE: CASE EVENT DATE: 2018
